FAERS Safety Report 12488921 (Version 4)
Quarter: 2019Q4

REPORT INFORMATION
  Report Type: Report from Study
  Country: US (occurrence: US)
  Receive Date: 20160622
  Receipt Date: 20191230
  Transmission Date: 20200122
  Serious: Yes (Hospitalization, Disabling)
  Sender: FDA-Public Use
  Company Number: US-UCBSA-2016003916

PATIENT
  Age: 53 Year
  Sex: Female
  Weight: 109 kg

DRUGS (4)
  1. LANTUS [Concomitant]
     Active Substance: INSULIN GLARGINE
     Indication: PRODUCT USED FOR UNKNOWN INDICATION
     Dosage: 35 UNITS DAILY
  2. CERTOLIZUMAB PEGOL [Suspect]
     Active Substance: CERTOLIZUMAB PEGOL
     Indication: OFF LABEL USE
  3. CERTOLIZUMAB PEGOL [Suspect]
     Active Substance: CERTOLIZUMAB PEGOL
     Indication: COLITIS ULCERATIVE
     Dosage: 200 MG, EV 2 WEEKS(QOW), NDC 50474-700-62
     Route: 058
     Dates: start: 20160115
  4. CERTOLIZUMAB PEGOL [Suspect]
     Active Substance: CERTOLIZUMAB PEGOL
     Indication: CROHN^S DISEASE
     Dosage: 400 MG, EV 4 WEEKS, EXPIRY DATE: SEP-2018
     Route: 058
     Dates: start: 20150731

REACTIONS (5)
  - Colostomy [Not Recovered/Not Resolved]
  - Off label use [Unknown]
  - Synovial cyst [Unknown]
  - Sunburn [Unknown]
  - Post procedural infection [Unknown]

NARRATIVE: CASE EVENT DATE: 20160115
